FAERS Safety Report 21859724 (Version 1)
Quarter: 2023Q1

REPORT INFORMATION
  Report Type: Report from Study
  Country: CA (occurrence: CA)
  Receive Date: 20230113
  Receipt Date: 20230113
  Transmission Date: 20230417
  Serious: Yes (Hospitalization, Other)
  Sender: FDA-Public Use
  Company Number: CA-002147023-PHHY2019CA039579

PATIENT
  Age: 72 Year
  Sex: Female

DRUGS (2)
  1. TASIGNA [Suspect]
     Active Substance: NILOTINIB
     Indication: Chronic myeloid leukaemia
     Dosage: 400 MG, BID
     Route: 048
     Dates: start: 20190124
  2. PERINDOPRIL [Concomitant]
     Active Substance: PERINDOPRIL
     Indication: Product used for unknown indication
     Dosage: 8 MG, QD
     Route: 048
     Dates: start: 20180729

REACTIONS (10)
  - Kidney infection [Recovered/Resolved]
  - Back pain [Unknown]
  - Pneumonia [Recovering/Resolving]
  - Influenza [Recovering/Resolving]
  - Asthenia [Recovering/Resolving]
  - Dysphonia [Recovering/Resolving]
  - Cough [Unknown]
  - Weight increased [Unknown]
  - Fall [Unknown]
  - Hand fracture [Unknown]

NARRATIVE: CASE EVENT DATE: 20190101
